FAERS Safety Report 5370336-9 (Version None)
Quarter: 2007Q2

REPORT INFORMATION
  Report Type: 
  Country: None (occurrence: None)
  Receive Date: 20070626
  Receipt Date: 20070614
  Transmission Date: 20071010
  Serious: Yes (Death, Hospitalization)
  Sender: FDA-Public Use
  Company Number: IT-ROCHE-496151

PATIENT
  Age: 50 Year
  Sex: Female
  Weight: 77 kg

DRUGS (8)
  1. CAPECITABINE [Suspect]
     Indication: COLORECTAL CANCER
     Dosage: GIVEN ON DAYS ONE TO FOURTEEN EVERY MONTH.
     Route: 048
     Dates: start: 20070410, end: 20070501
  2. BEVACIZUMAB [Suspect]
     Indication: COLORECTAL CANCER
     Dosage: DOSE FORM: VIALS.
     Route: 042
     Dates: start: 20070410, end: 20070501
  3. OXALIPLATIN [Suspect]
     Indication: COLORECTAL CANCER
     Dosage: DOSE FROM: VIALS.
     Route: 042
     Dates: start: 20070410, end: 20070501
  4. LANSOX [Concomitant]
     Dates: start: 20070418
  5. DELTACORTENE [Concomitant]
     Dates: start: 20070408
  6. PLASIL [Concomitant]
     Dates: start: 20070418
  7. NEORECORMON [Concomitant]
     Dates: start: 20070412
  8. OSIPINE [Concomitant]

REACTIONS (1)
  - INTESTINAL OBSTRUCTION [None]
